FAERS Safety Report 9813630 (Version 1)
Quarter: 2014Q1

REPORT INFORMATION
  Report Type: Spontaneous
  Country: US (occurrence: None)
  Receive Date: 20140109
  Receipt Date: 20140109
  Transmission Date: 20141002
  Serious: Yes (Hospitalization, Other)
  Sender: FDA-Public Use
  Company Number: None

PATIENT
  Age: 13 Year
  Sex: Female
  Weight: 46.72 kg

DRUGS (1)
  1. MINOCYCLINE [Suspect]
     Dosage: BY MOUTH
     Dates: start: 20131105, end: 20131127

REACTIONS (2)
  - Papilloedema [None]
  - Intracranial pressure increased [None]
